FAERS Safety Report 4688662-5 (Version None)
Quarter: 2005Q2

REPORT INFORMATION
  Report Type: 
  Country: None (occurrence: None)
  Receive Date: 20050610
  Receipt Date: 20050610
  Transmission Date: 20051028
  Serious: No
  Sender: FDA-Public Use
  Company Number: None

PATIENT
  Age: 47 Year
  Sex: Female
  Weight: 92 kg

DRUGS (5)
  1. QUETIAPINE FUMARATE [Suspect]
     Indication: SCHIZOAFFECTIVE DISORDER
     Dosage: 600 MG DAILY ORAL
     Route: 048
     Dates: start: 20050427, end: 20050401
  2. LAC-HYDRIN [Concomitant]
  3. CELEXA [Concomitant]
  4. RISPERIDONE [Concomitant]
  5. UREA 20% CREAM [Concomitant]

REACTIONS (1)
  - WEIGHT INCREASED [None]
